FAERS Safety Report 20653419 (Version 1)
Quarter: 2022Q1

REPORT INFORMATION
  Report Type: Spontaneous
  Country: US (occurrence: US)
  Receive Date: 20220330
  Receipt Date: 20220330
  Transmission Date: 20220423
  Serious: No
  Sender: FDA-Public Use
  Company Number: US-ALLERGAN-2207807US

PATIENT
  Sex: Female

DRUGS (4)
  1. UBRELVY [Suspect]
     Active Substance: UBROGEPANT
     Indication: Product used for unknown indication
     Dosage: UNK
  2. MODERNA COVID-19 VACCINE [Concomitant]
     Active Substance: ELASOMERAN
     Dosage: UNK
     Dates: start: 20220122, end: 20220122
  3. VACUNA COVID-19 PFIZER BIONTECH [Concomitant]
     Dosage: UNK
     Dates: start: 20210409, end: 20210409
  4. VACUNA COVID-19 PFIZER BIONTECH [Concomitant]
     Dosage: UNK
     Dates: start: 20210319, end: 20210319

REACTIONS (1)
  - Drug ineffective [Unknown]
